FAERS Safety Report 8793497 (Version 1)
Quarter: 2012Q4

REPORT INFORMATION
  Report Type: 
  Country: US (occurrence: US)
  Receive Date: 20120917
  Receipt Date: 20120917
  Transmission Date: 20130627
  Serious: Yes (Other)
  Sender: FDA-Public Use
  Company Number: US-PFIZER INC-2012223358

PATIENT
  Age: 4 Year
  Sex: Female
  Weight: 12.7 kg

DRUGS (1)
  1. CHILDRENS DIMETAPP COLD AND COUGH [Suspect]
     Dosage: UNK

REACTIONS (3)
  - Respiratory rate increased [Unknown]
  - Wheezing [Unknown]
  - Gastric disorder [Unknown]
